FAERS Safety Report 4340635-8 (Version None)
Quarter: 2004Q2

REPORT INFORMATION
  Report Type: 
  Country: None (occurrence: None)
  Receive Date: 20040419
  Receipt Date: 20040414
  Transmission Date: 20050107
  Serious: Yes (Death)
  Sender: FDA-Public Use
  Company Number: BW-BRISTOL-MYERS SQUIBB COMPANY-12561817

PATIENT
  Sex: Female

DRUGS (3)
  1. EFAVIRENZ [Suspect]
  2. DIDANOSINE [Suspect]
  3. ZIDOVUDINE [Suspect]

REACTIONS (1)
  - DEATH [None]
